FAERS Safety Report 16242145 (Version 1)
Quarter: 2019Q2

REPORT INFORMATION
  Report Type: Report from Study
  Country: DK (occurrence: DK)
  Receive Date: 20190426
  Receipt Date: 20190426
  Transmission Date: 20190711
  Serious: Yes (Other)
  Sender: FDA-Public Use
  Company Number: DK-ALK-ABELLO A/S-2016AA003281

PATIENT

DRUGS (3)
  1. ACARIZAX [Suspect]
     Active Substance: DERMATOPHAGOIDES FARINAE\DERMATOPHAGOIDES PTERONYSSINUS
     Dosage: UNK
     Dates: start: 20161027, end: 20170301
  2. ACARIZAX [Suspect]
     Active Substance: DERMATOPHAGOIDES FARINAE\DERMATOPHAGOIDES PTERONYSSINUS
     Dosage: UNK
     Dates: start: 20170415
  3. CITALOPRAM [Concomitant]
     Active Substance: CITALOPRAM HYDROBROMIDE
     Dosage: UNK

REACTIONS (3)
  - Lung infection [Recovered/Resolved]
  - Bronchitis [Recovered/Resolved]
  - Oral mucosal blistering [Recovered/Resolved]

NARRATIVE: CASE EVENT DATE: 20161117
